FAERS Safety Report 18230170 (Version 2)
Quarter: 2020Q3

REPORT INFORMATION
  Report Type: Spontaneous
  Country: US (occurrence: US)
  Receive Date: 20200904
  Receipt Date: 20200918
  Transmission Date: 20201103
  Serious: Yes (Other)
  Sender: FDA-Public Use
  Company Number: US-DECIPHERA PHARMACEUTICALS LLC-2020-US-000038

PATIENT
  Sex: Female

DRUGS (2)
  1. QINLOCK [Suspect]
     Active Substance: RIPRETINIB
     Dosage: 150 MILLIGRAM, QD
     Dates: start: 20200623, end: 20200909
  2. QINLOCK [Suspect]
     Active Substance: RIPRETINIB
     Indication: GASTROINTESTINAL STROMAL TUMOUR
     Dosage: 150 MILLIGRAM, QD
     Route: 048
     Dates: start: 20200623, end: 20200909

REACTIONS (12)
  - Tremor [Unknown]
  - Dizziness [Recovered/Resolved]
  - Therapeutic response unexpected [Unknown]
  - Abdominal neoplasm [Unknown]
  - Rash pruritic [Unknown]
  - Tumour pain [Unknown]
  - Blood glucose decreased [Unknown]
  - Diarrhoea [Recovered/Resolved]
  - Hospice care [Unknown]
  - Urticaria [Unknown]
  - Pruritus [Unknown]
  - Decreased appetite [Unknown]
